FAERS Safety Report 9478162 (Version 1)
Quarter: 2013Q3

REPORT INFORMATION
  Report Type: Spontaneous
  Country: FR (occurrence: FR)
  Receive Date: 20130827
  Receipt Date: 20130827
  Transmission Date: 20140515
  Serious: Yes (Other)
  Sender: FDA-Public Use
  Company Number: FR-PFIZER INC-2013242033

PATIENT
  Age: 78 Year
  Sex: Female

DRUGS (2)
  1. SOLU-MEDROL [Suspect]
     Dosage: 240 MG, CYCLIC
     Route: 042
     Dates: start: 20130708, end: 20130708
  2. ROACTEMRA [Suspect]
     Indication: INFLAMMATION
     Dosage: 1 DAY CYCLE; 6 CYCLES IN TOTAL (520 MG/LAST CYCLE)
     Route: 042
     Dates: start: 20130417, end: 20130708

REACTIONS (1)
  - Face oedema [Unknown]
